FAERS Safety Report 17553054 (Version 1)
Quarter: 2020Q1

REPORT INFORMATION
  Report Type: Spontaneous
  Country: US (occurrence: US)
  Receive Date: 20200317
  Receipt Date: 20200317
  Transmission Date: 20200409
  Serious: No
  Sender: FDA-Public Use
  Company Number: US-VIFOR (INTERNATIONAL) INC.-VIT-2020-03934

PATIENT
  Age: 79 Year
  Sex: Male

DRUGS (15)
  1. AMLODIPINE [Concomitant]
     Active Substance: AMLODIPINE BESYLATE
     Dates: start: 20190531
  2. OMEPRAZOLE. [Concomitant]
     Active Substance: OMEPRAZOLE
     Dates: start: 20190531
  3. BACLOFEN. [Concomitant]
     Active Substance: BACLOFEN
     Dates: start: 20190531
  4. NOVOLIN R [Concomitant]
     Active Substance: INSULIN HUMAN
  5. VITAMIN D3 [Concomitant]
     Active Substance: CHOLECALCIFEROL
     Dates: start: 20190531
  6. LISINOPRIL. [Concomitant]
     Active Substance: LISINOPRIL
     Dates: start: 20190531
  7. ATORVASTATIN [Concomitant]
     Active Substance: ATORVASTATIN
     Dates: start: 20190531
  8. IMURAN [Concomitant]
     Active Substance: AZATHIOPRINE
     Dates: start: 20190531
  9. CEVIMELINE. [Concomitant]
     Active Substance: CEVIMELINE
     Dates: start: 20190531
  10. FOLIC ACID. [Concomitant]
     Active Substance: FOLIC ACID
     Dates: start: 20190531
  11. FUROSEMIDE. [Concomitant]
     Active Substance: FUROSEMIDE
     Dates: start: 20190531
  12. VITAMIN B12 [Concomitant]
     Active Substance: CYANOCOBALAMIN
     Dosage: CR
     Dates: start: 20190531
  13. LANTUS [Concomitant]
     Active Substance: INSULIN GLARGINE
     Dates: start: 20190531
  14. VELTASSA [Suspect]
     Active Substance: PATIROMER
     Indication: HYPERKALAEMIA
     Route: 048
  15. PROPRANOLOL [Concomitant]
     Active Substance: PROPRANOLOL HYDROCHLORIDE
     Dosage: 160MG ER
     Dates: start: 20190531

REACTIONS (1)
  - Blood potassium abnormal [Not Recovered/Not Resolved]

NARRATIVE: CASE EVENT DATE: 20200224
